FAERS Safety Report 7337972-1 (Version None)
Quarter: 2011Q1

REPORT INFORMATION
  Report Type: 
  Country: None (occurrence: None)
  Receive Date: 20110308
  Receipt Date: 20110228
  Transmission Date: 20110831
  Serious: Yes (Other)
  Sender: FDA-Public Use
  Company Number: KR-ROCHE-763808

PATIENT

DRUGS (3)
  1. CISPLATIN [Suspect]
     Indication: GASTRIC CANCER
     Route: 065
  2. SUNITINIB [Suspect]
     Indication: GASTRIC CANCER
     Dosage: 2 WEEK ON 1 WEEK OFF  (2/1)
     Route: 065
  3. CAPECITABINE [Suspect]
     Indication: GASTRIC CANCER
     Dosage: ON DAY1 AND DAY 14
     Route: 065

REACTIONS (2)
  - FATIGUE [None]
  - HYPONATRAEMIA [None]
